FAERS Safety Report 9153429 (Version 1)
Quarter: 2013Q1

REPORT INFORMATION
  Report Type: Spontaneous
  Country: US (occurrence: None)
  Receive Date: 20130306
  Receipt Date: 20130306
  Transmission Date: 20140127
  Serious: Yes (Life-Threatening)
  Sender: FDA-Public Use
  Company Number: None

PATIENT
  Age: 67 Year
  Sex: Female
  Weight: 79.38 kg

DRUGS (3)
  1. ATACAND [Suspect]
     Indication: HYPERTENSION
     Dosage: OVER FOUR YEARS
  2. ATACAND [Suspect]
     Indication: RENAL DISORDER
     Dosage: OVER FOUR YEARS
  3. ATACAND [Suspect]
     Indication: CARDIAC DISORDER
     Dosage: OVER FOUR YEARS

REACTIONS (11)
  - Dyspnoea [None]
  - Fatigue [None]
  - Gastrointestinal disorder [None]
  - Swelling [None]
  - Abdominal distension [None]
  - Discomfort [None]
  - Pulmonary oedema [None]
  - Cough [None]
  - Dizziness [None]
  - Heart rate decreased [None]
  - Heart rate irregular [None]
